FAERS Safety Report 21251713 (Version 10)
Quarter: 2022Q4

REPORT INFORMATION
  Report Type: Report from Study
  Country: HR (occurrence: None)
  Receive Date: 20220825
  Receipt Date: 20221222
  Transmission Date: 20230113
  Serious: Yes (Hospitalization, Disabling, Other)
  Sender: FDA-Public Use
  Company Number: HR-ROCHE-3144163

PATIENT
  Age: 45 Year
  Sex: Female
  Weight: 54 kg

DRUGS (8)
  1. ATEZOLIZUMAB [Suspect]
     Active Substance: ATEZOLIZUMAB
     Indication: Breast cancer metastatic
     Dosage: ON 11/JUL/2022, MOST RECENT DOSE OF STUDY DRUG ATEZOLIZUMAB PRIOR TO AE/SAE?ON 01/AUG/2022, MOST REC
     Route: 041
     Dates: start: 20220711
  2. ADO-TRASTUZUMAB EMTANSINE [Suspect]
     Active Substance: ADO-TRASTUZUMAB EMTANSINE
     Indication: Breast cancer metastatic
     Dosage: ON 11/JUL/2022, MOST RECENT DOSE OF STUDY DRUG TRASTUZUMAB EMTANSINE (162 MG)) PRIOR TO AE/SAE?ON 01
     Route: 042
     Dates: start: 20220711
  3. LEVOTHYROXINE [Concomitant]
     Active Substance: LEVOTHYROXINE
     Route: 048
  4. FLUVOXAMINE [Concomitant]
     Active Substance: FLUVOXAMINE
     Indication: Depression
     Route: 048
  5. CAFFEINE [Concomitant]
     Active Substance: CAFFEINE
  6. METOCLOPRAMIDE [Concomitant]
     Active Substance: METOCLOPRAMIDE
     Indication: Nausea
     Dosage: DOSE 1 AMPULE
     Route: 042
     Dates: start: 20220718, end: 20220718
  7. BISOPROLOL [Concomitant]
     Active Substance: BISOPROLOL
     Indication: Ejection fraction decreased
     Route: 048
     Dates: start: 20220725
  8. RAMIPRIL [Concomitant]
     Active Substance: RAMIPRIL
     Indication: Ejection fraction decreased
     Route: 048
     Dates: start: 20220725

REACTIONS (4)
  - Biliary obstruction [Recovered/Resolved]
  - Pulmonary embolism [Recovering/Resolving]
  - Pleural effusion [Recovering/Resolving]
  - Cardiac failure acute [Not Recovered/Not Resolved]

NARRATIVE: CASE EVENT DATE: 20220718
